FAERS Safety Report 7543013-3 (Version None)
Quarter: 2011Q2

REPORT INFORMATION
  Report Type: 
  Country: None (occurrence: None)
  Receive Date: 20110613
  Receipt Date: 20110607
  Transmission Date: 20111010
  Serious: Yes (Hospitalization)
  Sender: FDA-Public Use
  Company Number: PHHO2011FR09919

PATIENT
  Sex: Female
  Weight: 93 kg

DRUGS (11)
  1. METHOTREXATE [Concomitant]
     Indication: PROPHYLAXIS
     Dosage: UNK
     Route: 037
     Dates: start: 20100610
  2. METHOTREXATE [Concomitant]
     Dosage: UNK
     Dates: start: 20100713
  3. NEUPOGEN [Concomitant]
     Indication: PROPHYLAXIS
     Dosage: UNK
     Dates: start: 20100713
  4. MERCAPTOPURINE [Concomitant]
  5. IMATINIB MESYLATE [Suspect]
     Dosage: UNK
     Route: 048
     Dates: start: 20110121
  6. VINCRISTINE [Concomitant]
     Dosage: UNK
     Dates: start: 20100610
  7. DEXAMETHASONE [Concomitant]
     Dosage: UNK
     Dates: start: 20100610
  8. IMATINIB MESYLATE [Suspect]
     Dosage: UNK
     Route: 048
     Dates: start: 20100713
  9. CYTARABINE [Concomitant]
     Indication: PROPHYLAXIS
     Dosage: UNK
     Dates: start: 20100610
  10. IMATINIB MESYLATE [Suspect]
     Indication: ACUTE LYMPHOCYTIC LEUKAEMIA
     Dosage: UNK
     Route: 048
     Dates: start: 20100610
  11. CYTARABINE [Concomitant]
     Dosage: UNK
     Dates: start: 20100713

REACTIONS (1)
  - FEBRILE BONE MARROW APLASIA [None]
